FAERS Safety Report 9523665 (Version 3)
Quarter: 2013Q3

REPORT INFORMATION
  Report Type: Spontaneous
  Country: US (occurrence: US)
  Receive Date: 20130913
  Receipt Date: 20130930
  Transmission Date: 20140515
  Serious: Yes (Other)
  Sender: FDA-Public Use
  Company Number: US-GILEAD-2013-0083123

PATIENT
  Sex: Female

DRUGS (21)
  1. LETAIRIS [Suspect]
     Indication: PORTOPULMONARY HYPERTENSION
     Dosage: 5 MG, QD
     Route: 048
     Dates: start: 20100920
  2. REVATIO [Concomitant]
  3. LEVOTHYROXINE [Concomitant]
  4. SPIRONOLACTONE [Concomitant]
  5. NEOMYCIN [Concomitant]
  6. AZATHIOPRINE [Concomitant]
  7. POTASSIUM CHLORIDE [Concomitant]
  8. CITALOPRAM [Concomitant]
  9. LACTULOSE [Concomitant]
  10. OXYGEN [Concomitant]
  11. PRAVASTATIN [Concomitant]
  12. PRIMIDONE [Concomitant]
  13. METOPROLOL [Concomitant]
  14. GABAPENTIN [Concomitant]
  15. HYDROCODONE/ACETAMINOPHEN          /00607101/ [Concomitant]
  16. CYCLOBENZAPRINE [Concomitant]
  17. OMEPRAZOLE [Concomitant]
  18. ONE-A-DAY                          /07499601/ [Concomitant]
  19. RECLAST [Concomitant]
  20. FUROSEMIDE [Concomitant]
  21. ZETIA [Concomitant]

REACTIONS (1)
  - Deafness [Unknown]
